FAERS Safety Report 9681108 (Version 1)
Quarter: 2013Q4

REPORT INFORMATION
  Report Type: Spontaneous
  Country: AT (occurrence: AT)
  Receive Date: 20131111
  Receipt Date: 20131111
  Transmission Date: 20140711
  Serious: Yes (Hospitalization)
  Sender: FDA-Public Use
  Company Number: AT-MYLANLABS-2013S1024294

PATIENT
  Age: 53 Year
  Sex: Male

DRUGS (7)
  1. VENLAFAXINE [Suspect]
     Indication: DEPRESSION
     Route: 048
  2. VENLAFAXINE [Suspect]
     Indication: DEPRESSION
     Route: 048
  3. MIRTAZAPINE [Concomitant]
     Indication: DEPRESSION
     Route: 048
  4. PREGABALIN [Concomitant]
     Indication: GENERALISED ANXIETY DISORDER
     Route: 048
  5. ESOMEPRAZOLE [Concomitant]
     Indication: PRODUCT USED FOR UNKNOWN INDICATION
     Route: 048
  6. CLONAZEPAM [Concomitant]
     Indication: PRODUCT USED FOR UNKNOWN INDICATION
     Route: 048
  7. BISOPROLOL [Concomitant]
     Indication: HYPERTENSION
     Route: 048

REACTIONS (5)
  - Dizziness [Recovered/Resolved]
  - Fall [Recovered/Resolved]
  - Aggression [Recovered/Resolved]
  - Tension [Recovered/Resolved]
  - Blood pressure increased [Recovered/Resolved]
